FAERS Safety Report 21139882 (Version 1)
Quarter: 2022Q3

REPORT INFORMATION
  Report Type: Spontaneous
  Country: US (occurrence: US)
  Receive Date: 20220728
  Receipt Date: 20220728
  Transmission Date: 20221026
  Serious: No
  Sender: FDA-Public Use
  Company Number: ENDG22-00042

PATIENT
  Age: 60 Year
  Sex: Male

DRUGS (4)
  1. TIGAN [Suspect]
     Active Substance: TRIMETHOBENZAMIDE HYDROCHLORIDE
     Indication: Nausea
     Dosage: UNK UNKNOWN, UNKNOWN
     Route: 030
  2. TIGAN [Suspect]
     Active Substance: TRIMETHOBENZAMIDE HYDROCHLORIDE
     Indication: Vomiting
  3. TIGAN [Concomitant]
     Active Substance: TRIMETHOBENZAMIDE HYDROCHLORIDE
     Indication: Nausea
     Dosage: UNK UNKNOWN, UNKNOWN
     Route: 065
  4. TIGAN [Concomitant]
     Active Substance: TRIMETHOBENZAMIDE HYDROCHLORIDE
     Indication: Vomiting

REACTIONS (1)
  - Procedural pain [Unknown]
